FAERS Safety Report 7761803-9 (Version None)
Quarter: 2011Q3

REPORT INFORMATION
  Report Type: 
  Country: None (occurrence: None)
  Receive Date: 20110920
  Receipt Date: 20110914
  Transmission Date: 20111222
  Serious: Yes (Hospitalization)
  Sender: FDA-Public Use
  Company Number: PHHY2011FI82448

PATIENT
  Sex: Female

DRUGS (1)
  1. EXELON [Suspect]
     Dosage: 4.6 MG, UNK
     Dates: start: 20110101

REACTIONS (3)
  - SKIN REACTION [None]
  - WOUND SECRETION [None]
  - APPLICATION SITE DISCHARGE [None]
